FAERS Safety Report 6299899-6 (Version None)
Quarter: 2009Q3

REPORT INFORMATION
  Report Type: 
  Country: None (occurrence: None)
  Receive Date: 20090806
  Receipt Date: 20090729
  Transmission Date: 20100115
  Serious: Yes (Other)
  Sender: FDA-Public Use
  Company Number: PHHY2009JP22144

PATIENT
  Age: 68 Year
  Sex: Male

DRUGS (10)
  1. DIOVAN [Suspect]
     Indication: HYPERTENSION
     Dosage: 80 MG/DAY
     Route: 048
     Dates: start: 20090507, end: 20090515
  2. LASIX [Concomitant]
     Dosage: 40 MG, UNK
     Route: 048
     Dates: start: 20090507
  3. NORVASC [Concomitant]
     Dosage: 5 MG, UNK
     Route: 048
     Dates: start: 20090507
  4. GLYBURIDE [Concomitant]
     Dosage: 2.5 MG, UNK
     Route: 048
     Dates: start: 20090507, end: 20090515
  5. LENDORMIN [Concomitant]
     Dosage: 0.25 MG, UNK
     Route: 048
     Dates: start: 20090507
  6. FLUITRAN [Concomitant]
     Dosage: 2 MG, UNK
     Route: 048
     Dates: start: 20090514, end: 20090515
  7. DIGOXIN [Concomitant]
     Dosage: 0.25 MG, UNK
     Route: 048
     Dates: start: 20090514, end: 20090515
  8. TANATRIL [Concomitant]
     Dosage: 5 MG, UNK
     Route: 048
     Dates: start: 20090514, end: 20090515
  9. ARTIST [Concomitant]
     Dosage: 2.5 MG, UNK
     Route: 048
     Dates: start: 20090514, end: 20090515
  10. DRUG THERAPY NOS [Concomitant]
     Dosage: 2.7 MG
     Route: 048
     Dates: start: 20090507

REACTIONS (1)
  - HYPOGLYCAEMIA [None]
